FAERS Safety Report 9736081 (Version 2)
Quarter: 2013Q4

REPORT INFORMATION
  Report Type: Spontaneous
  Country: US (occurrence: US)
  Receive Date: 20131206
  Receipt Date: 20131212
  Transmission Date: 20140711
  Serious: Yes (Other)
  Sender: FDA-Public Use
  Company Number: CHPA2013US017950

PATIENT
  Age: 43 Year
  Sex: Male

DRUGS (3)
  1. GAS-X ULTRA STRENGTH [Suspect]
     Indication: ERUCTATION
     Dosage: 1 DF, QD
     Route: 048
     Dates: start: 1998, end: 2000
  2. GAS-X ULTRA STRENGTH [Suspect]
     Indication: OFF LABEL USE
     Dosage: 1 DF, ONCE/SINGLE
     Route: 048
     Dates: start: 20131202, end: 20131202
  3. GAS-X ULTRA STRENGTH [Suspect]
     Indication: FLATULENCE
     Dosage: 2 DF, QD
     Route: 048

REACTIONS (8)
  - Haemorrhoids [Not Recovered/Not Resolved]
  - Chest discomfort [Recovering/Resolving]
  - Dysuria [Not Recovered/Not Resolved]
  - Abdominal discomfort [Recovering/Resolving]
  - Constipation [Not Recovered/Not Resolved]
  - Flatulence [Unknown]
  - Condition aggravated [Unknown]
  - Therapeutic response unexpected [Unknown]
